FAERS Safety Report 9477501 (Version 1)
Quarter: 2013Q3

REPORT INFORMATION
  Report Type: Spontaneous
  Country: NL (occurrence: NL)
  Receive Date: 20130827
  Receipt Date: 20130827
  Transmission Date: 20140515
  Serious: Yes (Death)
  Sender: FDA-Public Use
  Company Number: NL-ROCHE-1265820

PATIENT
  Age: 65 Year
  Sex: Male

DRUGS (2)
  1. ROACTEMRA [Suspect]
     Indication: RHEUMATOID ARTHRITIS
     Route: 042
     Dates: start: 20130507
  2. METHOTREXATE [Concomitant]

REACTIONS (1)
  - Completed suicide [Fatal]
